FAERS Safety Report 16900648 (Version 2)
Quarter: 2019Q4

REPORT INFORMATION
  Report Type: Spontaneous
  Country: US (occurrence: US)
  Receive Date: 20191009
  Receipt Date: 20191028
  Transmission Date: 20200122
  Serious: Yes (Other)
  Sender: FDA-Public Use
  Company Number: US-SA-2019SA270633

PATIENT
  Age: 72 Year
  Sex: Female
  Weight: 68.48 kg

DRUGS (1)
  1. AUBAGIO [Suspect]
     Active Substance: TERIFLUNOMIDE
     Indication: MULTIPLE SCLEROSIS
     Dosage: 14 MG, QD
     Route: 048
     Dates: start: 20190325, end: 20190920

REACTIONS (6)
  - Drug ineffective [Unknown]
  - Musculoskeletal disorder [Unknown]
  - Hemiparesis [Unknown]
  - Multiple sclerosis [Unknown]
  - Mobility decreased [Unknown]
  - Multiple sclerosis relapse [Unknown]

NARRATIVE: CASE EVENT DATE: 2019
